FAERS Safety Report 12502556 (Version 1)
Quarter: 2016Q2

REPORT INFORMATION
  Report Type: Spontaneous
  Country: US (occurrence: US)
  Receive Date: 20160627
  Receipt Date: 20160627
  Transmission Date: 20160815
  Serious: Yes (Other)
  Sender: FDA-Public Use
  Company Number: US-TEVA-670237USA

PATIENT
  Age: 47 Year
  Sex: Female

DRUGS (1)
  1. ZECUITY [Suspect]
     Active Substance: SUMATRIPTAN SUCCINATE
     Indication: MIGRAINE
     Dosage: 6.5MG/4HOUR
     Route: 062
     Dates: start: 20160415, end: 20160610

REACTIONS (3)
  - Application site scab [Unknown]
  - Application site pain [Unknown]
  - Application site scar [Unknown]

NARRATIVE: CASE EVENT DATE: 20160610
